FAERS Safety Report 15785962 (Version 1)
Quarter: 2019Q1

REPORT INFORMATION
  Report Type: Spontaneous
  Country: US (occurrence: US)
  Receive Date: 20190103
  Receipt Date: 20190103
  Transmission Date: 20190417
  Serious: Yes (Disabling)
  Sender: FDA-Public Use
  Company Number: None

PATIENT
  Age: 45 Year
  Sex: Male
  Weight: 85.5 kg

DRUGS (4)
  1. CIPRO [Suspect]
     Active Substance: CIPROFLOXACIN HYDROCHLORIDE
     Indication: OSTEOMYELITIS
     Route: 042
     Dates: start: 20011001, end: 20011115
  2. TURMERIC [Concomitant]
     Active Substance: HERBALS\TURMERIC
  3. FISH OIL [Concomitant]
     Active Substance: FISH OIL
  4. PROBIOTIC [Concomitant]
     Active Substance: PROBIOTICS NOS

REACTIONS (3)
  - Muscle injury [None]
  - Meniscus injury [None]
  - Systemic lupus erythematosus [None]

NARRATIVE: CASE EVENT DATE: 20140101
